FAERS Safety Report 16417374 (Version 5)
Quarter: 2019Q4

REPORT INFORMATION
  Report Type: Spontaneous
  Country: US (occurrence: US)
  Receive Date: 20190611
  Receipt Date: 20191113
  Transmission Date: 20200122
  Serious: No
  Sender: FDA-Public Use
  Company Number: US-ACTELION-A-NJ2019-190698

PATIENT
  Sex: Female

DRUGS (1)
  1. OPSUMIT [Suspect]
     Active Substance: MACITENTAN
     Indication: PRODUCT USED FOR UNKNOWN INDICATION
     Dosage: 10 MG, QD
     Route: 048
     Dates: start: 20190429

REACTIONS (8)
  - Malaise [Unknown]
  - Weight increased [Unknown]
  - Product dose omission [Unknown]
  - Asthenia [Unknown]
  - Gait disturbance [Unknown]
  - Oedema [Unknown]
  - Drug intolerance [Unknown]
  - Dyspnoea [Unknown]
